FAERS Safety Report 17210222 (Version 3)
Quarter: 2020Q1

REPORT INFORMATION
  Report Type: Report from Study
  Country: US (occurrence: US)
  Receive Date: 20191227
  Receipt Date: 20200306
  Transmission Date: 20200409
  Serious: Yes (Other)
  Sender: FDA-Public Use
  Company Number: NVSC2019US079451

PATIENT
  Age: 28 Year
  Sex: Female

DRUGS (2)
  1. MAYZENT [Suspect]
     Active Substance: SIPONIMOD
     Indication: SECONDARY PROGRESSIVE MULTIPLE SCLEROSIS
     Dosage: 2 MG, QD
     Route: 048
     Dates: start: 20191219
  2. MAYZENT [Suspect]
     Active Substance: SIPONIMOD
     Dosage: 2 MG
     Route: 048
     Dates: start: 20200304

REACTIONS (9)
  - Haemorrhage [Not Recovered/Not Resolved]
  - Vaginal haemorrhage [Unknown]
  - Hypersensitivity [Unknown]
  - Influenza like illness [Unknown]
  - Chest pain [Unknown]
  - Hallucination [Unknown]
  - Chest discomfort [Unknown]
  - Neck pain [Unknown]
  - Vision blurred [Unknown]

NARRATIVE: CASE EVENT DATE: 20191219
